FAERS Safety Report 14546104 (Version 5)
Quarter: 2018Q2

REPORT INFORMATION
  Report Type: Spontaneous
  Country: US (occurrence: US)
  Receive Date: 20180219
  Receipt Date: 20180511
  Transmission Date: 20180711
  Serious: Yes (Hospitalization, Other)
  Sender: FDA-Public Use
  Company Number: US-UNITED THERAPEUTICS-UNT-2018-001591

PATIENT
  Age: 79 Year
  Sex: Female
  Weight: 82.54 kg

DRUGS (1)
  1. TYVASO [Suspect]
     Active Substance: TREPROSTINIL
     Indication: PULMONARY ARTERIAL HYPERTENSION
     Dosage: 18-54 MICROGRAMS, QID
     Dates: start: 20170927

REACTIONS (4)
  - Malaise [Unknown]
  - Myocardial infarction [Unknown]
  - Renal failure [Unknown]
  - Cardiac valve vegetation [Unknown]

NARRATIVE: CASE EVENT DATE: 20180110
